FAERS Safety Report 10149997 (Version 4)
Quarter: 2014Q3

REPORT INFORMATION
  Report Type: Spontaneous
  Country: IT (occurrence: IT)
  Receive Date: 20140502
  Receipt Date: 20140721
  Transmission Date: 20150326
  Serious: Yes (Other)
  Sender: FDA-Public Use
  Company Number: IT-PFIZER INC-2014118939

PATIENT
  Age: 74 Year
  Sex: Male

DRUGS (2)
  1. RAMIPRIL. [Suspect]
     Active Substance: RAMIPRIL
     Indication: HYPERTENSION
     Dosage: 5 MG, DAILY
     Route: 048
     Dates: start: 20140408, end: 20140411
  2. DOXAZOSIN MESILATE [Suspect]
     Active Substance: DOXAZOSIN MESYLATE
     Indication: HYPERTENSION
     Dosage: 2 MG, DAILY
     Route: 048
     Dates: start: 20140408, end: 20140411

REACTIONS (1)
  - Angioedema [Recovering/Resolving]

NARRATIVE: CASE EVENT DATE: 20140411
